FAERS Safety Report 9491148 (Version 1)
Quarter: 2013Q3

REPORT INFORMATION
  Report Type: Spontaneous
  Country: US (occurrence: None)
  Receive Date: 20130827
  Receipt Date: 20130827
  Transmission Date: 20140515
  Serious: Yes (Hospitalization, Other)
  Sender: FDA-Public Use
  Company Number: 201308000247

PATIENT
  Age: 11 Month
  Sex: Female

DRUGS (3)
  1. NITRIC OXIDE (NITRIC OXIDE) INHALATION GAS, 800PPM [Suspect]
     Dosage: 20 PPM, CONTINUOUS INHALATION
  2. EPOPROSTENOL [Concomitant]
  3. FUROSEMIDE (FUROSEMIDE) [Concomitant]

REACTIONS (1)
  - Pulmonary oedema [None]
